FAERS Safety Report 15783156 (Version 1)
Quarter: 2019Q1

REPORT INFORMATION
  Report Type: Spontaneous
  Country: US (occurrence: US)
  Receive Date: 20190102
  Receipt Date: 20190102
  Transmission Date: 20190417
  Serious: Yes (Other)
  Sender: FDA-Public Use
  Company Number: US-BAYER-2018-244119

PATIENT
  Sex: Male

DRUGS (1)
  1. MILK OF MAGNESIA ORIGINAL [Suspect]
     Active Substance: MAGNESIUM HYDROXIDE
     Route: 048

REACTIONS (4)
  - Faeces hard [Unknown]
  - Constipation [Unknown]
  - Rectal haemorrhage [Unknown]
  - Drug effect incomplete [Unknown]
